FAERS Safety Report 17712511 (Version 2)
Quarter: 2020Q2

REPORT INFORMATION
  Report Type: Spontaneous
  Country: FR (occurrence: FR)
  Receive Date: 20200427
  Receipt Date: 20200514
  Transmission Date: 20200714
  Serious: Yes (Death)
  Sender: FDA-Public Use
  Company Number: FR-PFIZER INC-2020165910

PATIENT
  Age: 41 Year
  Sex: Male
  Weight: 100 kg

DRUGS (7)
  1. IPRATROPIUM BROMIDE. [Concomitant]
     Active Substance: IPRATROPIUM BROMIDE
     Dosage: UNK
  2. POLYIONIQUE FORMULE 1A G5 [Concomitant]
     Active Substance: DEXTROSE\POTASSIUM CHLORIDE\SODIUM CHLORIDE
     Dosage: UNK
  3. SALBUTAMOL [Concomitant]
     Active Substance: ALBUTEROL
     Dosage: UNK
  4. METHYLPREDNISOLONE SODIUM SUCCINATE. [Suspect]
     Active Substance: METHYLPREDNISOLONE SODIUM SUCCINATE
     Dosage: 120 MG, SINGLE
     Route: 041
     Dates: start: 20200309, end: 20200309
  5. PERFALGAN [Concomitant]
     Active Substance: ACETAMINOPHEN
     Dosage: UNK
  6. METHYLPREDNISOLONE SODIUM SUCCINATE. [Suspect]
     Active Substance: METHYLPREDNISOLONE SODIUM SUCCINATE
     Indication: ASTHMATIC CRISIS
     Dosage: 120 MG, SINGLE
     Route: 041
     Dates: start: 20200305, end: 20200305
  7. ACUPAN [Concomitant]
     Active Substance: NEFOPAM HYDROCHLORIDE
     Dosage: UNK

REACTIONS (2)
  - Condition aggravated [Fatal]
  - Coronavirus infection [Fatal]

NARRATIVE: CASE EVENT DATE: 20200309
